FAERS Safety Report 21410841 (Version 1)
Quarter: 2022Q4

REPORT INFORMATION
  Report Type: Spontaneous
  Country: US (occurrence: None)
  Receive Date: 20221004
  Receipt Date: 20221004
  Transmission Date: 20230113
  Serious: No
  Sender: FDA-Public Use
  Company Number: None

PATIENT
  Age: 63 Year
  Sex: Female

DRUGS (1)
  1. STELARA [Suspect]
     Active Substance: USTEKINUMAB
     Indication: Psoriasis
     Dosage: 45 MG EVERY 12 WEEKS SC?
     Route: 058
     Dates: start: 202207

REACTIONS (2)
  - Needle issue [None]
  - Incorrect dose administered [None]

NARRATIVE: CASE EVENT DATE: 20221001
